FAERS Safety Report 20718786 (Version 5)
Quarter: 2025Q2

REPORT INFORMATION
  Report Type: Report from Study
  Country: US (occurrence: US)
  Receive Date: 20220418
  Receipt Date: 20250411
  Transmission Date: 20250716
  Serious: Yes (Other)
  Sender: DAIICHI
  Company Number: US-DSJP-DSU-2022-113456AA

PATIENT
  Sex: Male

DRUGS (14)
  1. PEXIDARTINIB [Suspect]
     Active Substance: PEXIDARTINIB
     Indication: Giant cell tumour of tendon sheath
     Dosage: 200 MG, BID
     Route: 048
     Dates: start: 20220406, end: 2022
  2. PEXIDARTINIB [Suspect]
     Active Substance: PEXIDARTINIB
     Indication: Synovitis
     Dosage: 400 MG, QD (QPM)
     Route: 048
     Dates: start: 20220406
  3. PEXIDARTINIB [Suspect]
     Active Substance: PEXIDARTINIB
     Dosage: 1 CAPSULE, QD
     Route: 048
     Dates: start: 2022
  4. PEXIDARTINIB [Suspect]
     Active Substance: PEXIDARTINIB
     Dosage: 200 MG, QD (QAM)
     Route: 048
     Dates: start: 20220406
  5. PEXIDARTINIB [Suspect]
     Active Substance: PEXIDARTINIB
     Dosage: 200 MG, BID
     Route: 048
     Dates: start: 2022, end: 2022
  6. PEXIDARTINIB [Suspect]
     Active Substance: PEXIDARTINIB
     Dosage: 200 MG, BID
     Route: 048
     Dates: start: 20220406, end: 2022
  7. PEXIDARTINIB [Suspect]
     Active Substance: PEXIDARTINIB
     Dosage: 250 MG, BID
     Route: 048
     Dates: start: 20220406, end: 2022
  8. PEXIDARTINIB [Suspect]
     Active Substance: PEXIDARTINIB
     Dosage: 250 MG, BID
     Route: 048
     Dates: start: 20220406
  9. PEXIDARTINIB [Suspect]
     Active Substance: PEXIDARTINIB
     Dosage: 125 MG, BID
     Route: 048
     Dates: start: 20220406
  10. FISH OIL [Suspect]
     Active Substance: FISH OIL
     Indication: Product used for unknown indication
     Route: 065
  11. ATORVASTATIN [Concomitant]
     Active Substance: ATORVASTATIN
     Indication: Product used for unknown indication
     Route: 065
  12. AMLODIPINE [Concomitant]
     Active Substance: AMLODIPINE BESYLATE
     Indication: Product used for unknown indication
     Route: 065
  13. EZETIMIBE [Concomitant]
     Active Substance: EZETIMIBE
     Indication: Product used for unknown indication
     Route: 065
  14. LOSARTAN [Concomitant]
     Active Substance: LOSARTAN
     Indication: Product used for unknown indication
     Route: 065

REACTIONS (39)
  - Aspartate aminotransferase increased [Recovered/Resolved]
  - Alanine aminotransferase increased [Recovered/Resolved]
  - Blood bilirubin increased [Recovered/Resolved]
  - Feeling abnormal [Not Recovered/Not Resolved]
  - Mean cell haemoglobin increased [Not Recovered/Not Resolved]
  - Eosinophil count increased [Not Recovered/Not Resolved]
  - Mean cell volume abnormal [Not Recovered/Not Resolved]
  - Dermatitis contact [Not Recovered/Not Resolved]
  - Breath odour [Not Recovered/Not Resolved]
  - Dry skin [Recovering/Resolving]
  - Skin exfoliation [Unknown]
  - Skin exfoliation [Unknown]
  - Dry skin [Not Recovered/Not Resolved]
  - Pain in extremity [Not Recovered/Not Resolved]
  - Musculoskeletal discomfort [Not Recovered/Not Resolved]
  - Dizziness [Recovered/Resolved]
  - Headache [Not Recovered/Not Resolved]
  - Blood pressure increased [Recovered/Resolved]
  - Blood lactate dehydrogenase increased [Recovering/Resolving]
  - Blood cholesterol increased [Not Recovered/Not Resolved]
  - Malaise [Recovered/Resolved]
  - Pyrexia [Recovered/Resolved]
  - Vomiting [Not Recovered/Not Resolved]
  - Pruritus [Not Recovered/Not Resolved]
  - Erythema [Not Recovered/Not Resolved]
  - Rash [Not Recovered/Not Resolved]
  - Blood pressure increased [Not Recovered/Not Resolved]
  - Dysgeusia [Not Recovered/Not Resolved]
  - Rash [Unknown]
  - Rash [Not Recovered/Not Resolved]
  - Liver function test increased [Recovered/Resolved]
  - Aspartate aminotransferase increased [Recovered/Resolved]
  - Alanine aminotransferase increased [Recovered/Resolved]
  - Blood alkaline phosphatase increased [Recovered/Resolved]
  - Off label use [Not Recovered/Not Resolved]
  - Off label use [Not Recovered/Not Resolved]
  - Product dose omission issue [Not Recovered/Not Resolved]
  - Product use issue [Not Recovered/Not Resolved]
  - Product dose omission issue [Not Recovered/Not Resolved]

NARRATIVE: CASE EVENT DATE: 20220101
